FAERS Safety Report 8900754 (Version 1)
Quarter: 2012Q4

REPORT INFORMATION
  Report Type: 
  Country: CA (occurrence: CA)
  Receive Date: 20121109
  Receipt Date: 20121109
  Transmission Date: 20130627
  Serious: Yes (Other)
  Sender: FDA-Public Use
  Company Number: PHMT2007CA00679

PATIENT
  Sex: Female

DRUGS (3)
  1. SANDOSTATIN LAR [Suspect]
     Indication: NEUROENDOCRINE CARCINOMA
     Dosage: 20 mg, every 4 weeks
     Route: 030
     Dates: start: 20060911, end: 20070103
  2. SANDOSTATIN LAR [Suspect]
     Dosage: 10 mg, UNK
     Route: 030
     Dates: start: 200702
  3. ATENOLOL [Concomitant]
     Dosage: 25 mg, daily

REACTIONS (12)
  - Hepatic neoplasm [Unknown]
  - Abdominal discomfort [Not Recovered/Not Resolved]
  - Abdominal distension [Unknown]
  - Asthenia [Not Recovered/Not Resolved]
  - Malaise [Unknown]
  - Metastases to liver [Unknown]
  - Chest pain [Unknown]
  - Arthralgia [Not Recovered/Not Resolved]
  - Sensation of heaviness [Unknown]
  - Nervousness [Unknown]
  - Dizziness [Unknown]
  - Abdominal pain upper [Recovered/Resolved]
